FAERS Safety Report 8408951-8 (Version None)
Quarter: 2012Q2

REPORT INFORMATION
  Report Type: 
  Country: None (occurrence: None)
  Receive Date: 20120604
  Receipt Date: 20120314
  Transmission Date: 20120825
  Serious: No
  Sender: FDA-Public Use
  Company Number: US-NOVEN-12US004301

PATIENT
  Sex: Female

DRUGS (2)
  1. NECON                              /00013701/ [Concomitant]
     Indication: CONTRACEPTION
     Route: 048
  2. DAYTRANA [Suspect]
     Indication: ATTENTION DEFICIT/HYPERACTIVITY DISORDER
     Dosage: 20 MG, UNK
     Route: 062
     Dates: start: 20120101

REACTIONS (2)
  - OFF LABEL USE [None]
  - APPLICATION SITE RASH [None]
